FAERS Safety Report 5012251-6 (Version None)
Quarter: 2006Q2

REPORT INFORMATION
  Report Type: 
  Country: None (occurrence: None)
  Receive Date: 20060524
  Receipt Date: 20060520
  Transmission Date: 20061013
  Serious: Yes (Hospitalization)
  Sender: FDA-Public Use
  Company Number: 222348

PATIENT
  Age: 61 Year
  Sex: Male

DRUGS (2)
  1. AVASTIN [Suspect]
     Indication: HEPATIC NEOPLASM MALIGNANT
     Dosage: 345 MG, QD, INTRAVENOUS
     Route: 042
  2. MORPHINE SULFATE [Suspect]
     Dosage: UNK
     Route: 065

REACTIONS (3)
  - ABDOMINAL PAIN [None]
  - ASTHENIA [None]
  - SOMNOLENCE [None]
